FAERS Safety Report 24929091 (Version 1)
Quarter: 2025Q1

REPORT INFORMATION
  Report Type: Other
  Country: NI (occurrence: NI)
  Receive Date: 20250205
  Receipt Date: 20250205
  Transmission Date: 20250408
  Serious: No
  Sender: TOLMAR
  Company Number: NI-TOLMAR, INC.-25NI055553

PATIENT
  Sex: Female

DRUGS (8)
  1. ELIGARD [Suspect]
     Active Substance: LEUPROLIDE ACETATE
     Indication: Precocious puberty
     Dosage: 22.5 MILLIGRAM, Q 3 MONTH
     Route: 058
     Dates: start: 20211001
  2. ELIGARD [Suspect]
     Active Substance: LEUPROLIDE ACETATE
     Dosage: 22.5 MILLIGRAM, Q 3 MONTH
     Route: 058
     Dates: start: 20241126
  3. ELIGARD [Suspect]
     Active Substance: LEUPROLIDE ACETATE
     Indication: Precocious puberty
  4. LEVOTHYROXINE SODIUM [Concomitant]
     Active Substance: LEVOTHYROXINE SODIUM
     Indication: Hypothyroidism
  5. BECLOMETHASONE [Concomitant]
     Active Substance: BECLOMETHASONE
     Indication: Asthma
     Route: 055
  6. MOMETASONE [Concomitant]
     Active Substance: MOMETASONE
     Indication: Rhinitis
     Route: 055
  7. CETIRIZINE [Concomitant]
     Active Substance: CETIRIZINE HYDROCHLORIDE
     Indication: Antiallergic therapy
  8. MONTELUKAST [Concomitant]
     Active Substance: MONTELUKAST
     Indication: Antiallergic therapy
     Dosage: 10 MILLIGRAM, QD (TAKE BEFORE BREAKFAST ONCE A DAY ON AN EMPTY STOMACH)

REACTIONS (7)
  - Anxiety [Recovered/Resolved]
  - Disturbance in social behaviour [Recovered/Resolved]
  - Mood swings [Recovered/Resolved]
  - Asthma [Not Recovered/Not Resolved]
  - Tachycardia [Recovered/Resolved]
  - Insomnia [Recovered/Resolved]
  - Night sweats [Recovered/Resolved]
